FAERS Safety Report 4676900-4 (Version None)
Quarter: 2005Q2

REPORT INFORMATION
  Report Type: 
  Country: None (occurrence: None)
  Receive Date: 20050526
  Receipt Date: 20050308
  Transmission Date: 20051028
  Serious: Yes (Other)
  Sender: FDA-Public Use
  Company Number: WAES 0412USA02889

PATIENT
  Age: 59 Year
  Sex: Male

DRUGS (2)
  1. VYTORIN [Suspect]
     Indication: BLOOD CHOLESTEROL INCREASED
     Dosage: 10-20 MG/DAILY/PO
     Route: 048
     Dates: start: 20040101, end: 20040101
  2. LOTREL [Concomitant]

REACTIONS (3)
  - HAEMATURIA [None]
  - OPHTHALMOPLEGIA [None]
  - RHABDOMYOLYSIS [None]
